FAERS Safety Report 19252451 (Version 5)
Quarter: 2021Q4

REPORT INFORMATION
  Report Type: Other
  Country: CO (occurrence: CO)
  Receive Date: 20210513
  Receipt Date: 20211006
  Transmission Date: 20220303
  Serious: Yes (Hospitalization, Other)
  Sender: FDA-Public Use
  Company Number: CO-002147023-NVSC2021CO086790

PATIENT
  Age: 20 Year
  Sex: Female

DRUGS (1)
  1. XOLAIR [Suspect]
     Active Substance: OMALIZUMAB
     Indication: Idiopathic urticaria
     Route: 058
     Dates: start: 202102

REACTIONS (8)
  - Anaphylactic shock [Unknown]
  - Asthmatic crisis [Unknown]
  - Syncope [Recovered/Resolved]
  - Painful respiration [Unknown]
  - COVID-19 [Unknown]
  - Crying [Unknown]
  - Disease recurrence [Unknown]
  - Illness [Unknown]

NARRATIVE: CASE EVENT DATE: 20210401
